FAERS Safety Report 9391012 (Version 1)
Quarter: 2013Q3

REPORT INFORMATION
  Report Type: Spontaneous
  Country: US (occurrence: None)
  Receive Date: 20130705
  Receipt Date: 20130705
  Transmission Date: 20140515
  Serious: No
  Sender: FDA-Public Use
  Company Number: None

PATIENT
  Age: 27 Year
  Sex: Male
  Weight: 63.5 kg

DRUGS (2)
  1. AMOXICILLIN [Suspect]
     Indication: SINUSITIS
     Route: 048
     Dates: start: 20130408, end: 20130418
  2. EFFEXOR XR [Suspect]
     Dosage: ONCE DAILY
     Route: 048

REACTIONS (3)
  - Anxiety [None]
  - Insomnia [None]
  - Panic attack [None]
